FAERS Safety Report 5530199-5 (Version None)
Quarter: 2007Q4

REPORT INFORMATION
  Report Type: 
  Country: None (occurrence: None)
  Receive Date: 20071127
  Receipt Date: 20071120
  Transmission Date: 20080405
  Serious: Yes (Death, Other)
  Sender: FDA-Public Use
  Company Number: 163-20785-07110133

PATIENT
  Age: 79 Year
  Sex: Female

DRUGS (1)
  1. THALOMID [Suspect]
     Indication: MULTIPLE MYELOMA
     Dosage: 200 MG, 2 IN 1 D, ORAL
     Route: 048
     Dates: start: 20071006, end: 20071018

REACTIONS (12)
  - BONE MARROW FAILURE [None]
  - DIALYSIS [None]
  - KYPHOSIS [None]
  - MALIGNANT NEOPLASM PROGRESSION [None]
  - MULTI-ORGAN FAILURE [None]
  - MULTIPLE MYELOMA [None]
  - NERVOUS SYSTEM DISORDER [None]
  - OPPORTUNISTIC INFECTION [None]
  - PNEUMONIA ASPIRATION [None]
  - RENAL FAILURE [None]
  - RESPIRATORY DISTRESS [None]
  - RESPIRATORY FAILURE [None]
